FAERS Safety Report 26044309 (Version 1)
Quarter: 2025Q4

REPORT INFORMATION
  Report Type: Spontaneous
  Country: CA (occurrence: CA)
  Receive Date: 20251114
  Receipt Date: 20251114
  Transmission Date: 20260118
  Serious: Yes (Hospitalization, Other)
  Sender: MARKSANS PHARMA LIMITED
  Company Number: CA-MARKSANS PHARMA LIMITED-MPL202500112

PATIENT

DRUGS (4)
  1. FLUOXETINE HYDROCHLORIDE [Suspect]
     Active Substance: FLUOXETINE HYDROCHLORIDE
     Indication: Obsessive-compulsive disorder
     Dosage: 20 MILLIGRAM, QD (PER DAY)
     Route: 065
     Dates: start: 2021
  2. FLUOXETINE HYDROCHLORIDE [Suspect]
     Active Substance: FLUOXETINE HYDROCHLORIDE
     Dosage: 40 MILLIGRAM, QD (INCREASED)
     Route: 065
     Dates: start: 202406
  3. KEFLEX [Concomitant]
     Active Substance: CEPHALEXIN
     Indication: Postoperative wound infection
     Dosage: UNK
     Route: 065
     Dates: start: 2023
  4. FLAGYL [Concomitant]
     Active Substance: METRONIDAZOLE\METRONIDAZOLE HYDROCHLORIDE
     Indication: Postoperative wound infection
     Dosage: UNK
     Route: 065
     Dates: start: 2023

REACTIONS (1)
  - Anaphylactic reaction [Recovered/Resolved]

NARRATIVE: CASE EVENT DATE: 20250501
